FAERS Safety Report 5722153-5 (Version None)
Quarter: 2008Q2

REPORT INFORMATION
  Report Type: 
  Country: None (occurrence: None)
  Receive Date: 20080429
  Receipt Date: 20080422
  Transmission Date: 20081010
  Serious: No
  Sender: FDA-Public Use
  Company Number: US-BAXTER-2008BH003933

PATIENT
  Age: 38 Year
  Sex: Female
  Weight: 95 kg

DRUGS (2)
  1. HEPARIN SODIUM [Suspect]
     Indication: UTERINE CONTRACTIONS ABNORMAL
     Dosage: DOSE UNIT:UNKNOWN
     Route: 058
     Dates: start: 20061120, end: 20061120
  2. SYNTHROID [Concomitant]
     Indication: HYPOTHYROIDISM
     Dosage: DOSE UNIT:UNKNOWN
     Route: 065

REACTIONS (4)
  - BLOOD PRESSURE DECREASED [None]
  - NAUSEA [None]
  - THROAT TIGHTNESS [None]
  - VOMITING [None]
